APPROVED DRUG PRODUCT: GALANTAMINE HYDROBROMIDE
Active Ingredient: GALANTAMINE HYDROBROMIDE
Strength: EQ 8MG BASE
Dosage Form/Route: TABLET;ORAL
Application: A077781 | Product #002
Applicant: APOTEX INC.
Approved: Sep 27, 2011 | RLD: No | RS: No | Type: DISCN